FAERS Safety Report 23722305 (Version 1)
Quarter: 2024Q2

REPORT INFORMATION
  Report Type: Spontaneous
  Country: US (occurrence: None)
  Receive Date: 20240408
  Receipt Date: 20240408
  Transmission Date: 20240716
  Serious: Yes (unspecified)
  Sender: FDA-Public Use
  Company Number: None

PATIENT
  Age: 84 Year
  Sex: Male
  Weight: 70.65 kg

DRUGS (21)
  1. CETIRIZINE [Suspect]
     Active Substance: CETIRIZINE HYDROCHLORIDE
     Indication: Ear disorder
     Route: 048
     Dates: start: 20210621, end: 20231016
  2. ASPIRIN [Concomitant]
     Active Substance: ASPIRIN
  3. HERBALS\WITHANIA SOMNIFERA ROOT [Concomitant]
     Active Substance: HERBALS\WITHANIA SOMNIFERA ROOT
  4. COLLAGEN [Concomitant]
     Active Substance: COLLAGEN
  5. COENZYME Q10 [Concomitant]
     Active Substance: DIETARY SUPPLEMENT\UBIDECARENONE
  6. UBIQUINOL [Concomitant]
     Active Substance: UBIQUINOL
  7. CORN SILK [Concomitant]
  8. FISH OIL [Concomitant]
     Active Substance: FISH OIL
  9. HAWTHORN BERRY EXTRAXT [Concomitant]
  10. HORBAACH [Concomitant]
  11. IRON [Concomitant]
     Active Substance: IRON
  12. MAGNESIUM [Concomitant]
  13. MEGA MINERAL [Concomitant]
  14. MELATONIN [Concomitant]
     Active Substance: MELATONIN
  15. NATURDAO [Concomitant]
  16. ONE A DAY MEN^S MULTI-VITAMIN [Concomitant]
  17. DIETARY SUPPLEMENT [Concomitant]
     Active Substance: DIETARY SUPPLEMENT
  18. ST. JOHN^S WORT [Concomitant]
     Active Substance: ST. JOHN^S WORT
  19. HERBALS\SAW PALMETTO [Concomitant]
     Active Substance: HERBALS\SAW PALMETTO
  20. STINGING NETTLE ROOT [Concomitant]
  21. AMLODIPINE BESYLATE [Concomitant]
     Active Substance: AMLODIPINE BESYLATE

REACTIONS (9)
  - Insomnia [None]
  - Sleep terror [None]
  - Pruritus [None]
  - Constipation [None]
  - Diarrhoea [None]
  - Flatulence [None]
  - Hernia [None]
  - Drug intolerance [None]
  - Emotional distress [None]

NARRATIVE: CASE EVENT DATE: 20210621
